FAERS Safety Report 6560122-6 (Version None)
Quarter: 2010Q1

REPORT INFORMATION
  Report Type: 
  Country: None (occurrence: None)
  Receive Date: 20100129
  Receipt Date: 20050201
  Transmission Date: 20100710
  Serious: No
  Sender: FDA-Public Use
  Company Number: US-ALLERGAN-200410066

PATIENT
  Age: 41 Year
  Sex: Female
  Weight: 76.818 kg

DRUGS (11)
  1. BOTOX [Suspect]
     Indication: MUSCLE SPASTICITY
     Dosage: 500UNITS, PRN
     Route: 030
     Dates: start: 20041026
  2. BOTOX [Suspect]
     Indication: TREMOR
  3. TOPAMAX [Concomitant]
     Indication: CONVULSION
     Route: 048
  4. ZANAFLEX [Concomitant]
     Indication: MUSCLE SPASTICITY
     Route: 048
  5. ORTHO TRI-CYCLEN [Concomitant]
     Indication: MUSCLE SPASMS
     Route: 048
  6. FLEXERIL [Concomitant]
     Indication: MUSCLE SPASTICITY
     Route: 048
  7. SONATA [Concomitant]
     Indication: DRUG USE FOR UNKNOWN INDICATION
     Route: 048
  8. CENTRUM [Concomitant]
     Indication: DRUG USE FOR UNKNOWN INDICATION
     Route: 048
  9. KETA GABA CLON [Concomitant]
     Indication: MUSCLE RELAXANT THERAPY
     Route: 061
  10. MIDRIN [Concomitant]
     Indication: HEADACHE
  11. CLEBREX [Concomitant]
     Indication: PAIN
     Route: 048

REACTIONS (4)
  - DRUG INEFFECTIVE [None]
  - MUSCLE TIGHTNESS [None]
  - MUSCULOSKELETAL STIFFNESS [None]
  - NECK PAIN [None]
